FAERS Safety Report 5139377-0 (Version None)
Quarter: 2006Q4

REPORT INFORMATION
  Report Type: 
  Country: None (occurrence: None)
  Receive Date: 20061024
  Receipt Date: 20061010
  Transmission Date: 20070319
  Serious: Yes (Other)
  Sender: FDA-Public Use
  Company Number: 2006S1009613

PATIENT
  Age: 31 Year
  Sex: Female
  Weight: 77.1115 kg

DRUGS (9)
  1. DURAGESIC-100 [Suspect]
     Indication: NECK PAIN
     Dosage: 50 UG/HR; QOD; TDER
     Route: 062
     Dates: start: 20020101, end: 20050101
  2. FENTANYL TRANSDERMAL SYSTEM [Suspect]
     Indication: NECK PAIN
     Dosage: 50 UG/HR; QOD; TDER
     Route: 062
     Dates: start: 20050101, end: 20060501
  3. DURAGESIC-100 [Suspect]
     Indication: NECK PAIN
     Dosage: 75 UR/HR; QOD; TDER
     Route: 062
     Dates: start: 20060501
  4. DULOXETINE HYDROCHLORIDE [Concomitant]
  5. ONDANSETRON HCL [Concomitant]
  6. PANTOPRAZOLE SODIUM [Concomitant]
  7. GABAPENTIN [Concomitant]
  8. ALPRAZOLAM [Concomitant]
  9. PREDNISONE TAB [Concomitant]

REACTIONS (6)
  - APPLICATION SITE RASH [None]
  - BACK PAIN [None]
  - DENTAL CARIES [None]
  - DRY MOUTH [None]
  - RASH ERYTHEMATOUS [None]
  - ROAD TRAFFIC ACCIDENT [None]
